FAERS Safety Report 10380559 (Version 2)
Quarter: 2014Q4

REPORT INFORMATION
  Report Type: Spontaneous
  Country: JP (occurrence: JP)
  Receive Date: 20140813
  Receipt Date: 20141104
  Transmission Date: 20150528
  Serious: Yes (Death, Hospitalization, Other)
  Sender: FDA-Public Use
  Company Number: PHHY2013JP160585

PATIENT
  Age: 75 Year
  Sex: Female

DRUGS (24)
  1. EXELON [Suspect]
     Active Substance: RIVASTIGMINE TARTRATE
     Dosage: 9 MG, DAILY
     Route: 062
     Dates: start: 20121115, end: 20121212
  2. DOGMATIL [Concomitant]
     Active Substance: SULPIRIDE
     Indication: PRODUCT USED FOR UNKNOWN INDICATION
     Dosage: 50 MG, UNK
     Route: 048
     Dates: start: 20130124
  3. HEPAFLUSH [Concomitant]
     Indication: PRODUCT USED FOR UNKNOWN INDICATION
     Dosage: 10 ML, BID
     Route: 042
     Dates: start: 20130215
  4. PHYSISALZ PL [Concomitant]
     Indication: PRODUCT USED FOR UNKNOWN INDICATION
     Dosage: 20 ML, UNK
     Route: 042
     Dates: start: 20130216
  5. SEFIROM [Concomitant]
     Active Substance: CEFTRIAXONE SODIUM
     Indication: PRODUCT USED FOR UNKNOWN INDICATION
     Dosage: 1 G, BID
     Route: 042
     Dates: start: 20130215
  6. BISOLVON [Concomitant]
     Active Substance: BROMHEXINE HYDROCHLORIDE
     Indication: PRODUCT USED FOR UNKNOWN INDICATION
     Dosage: 2 ML, TID
     Route: 065
     Dates: start: 20130216
  7. LASIX [Concomitant]
     Active Substance: FUROSEMIDE
     Indication: PRODUCT USED FOR UNKNOWN INDICATION
     Dosage: 2 ML, UNK
     Route: 042
     Dates: start: 20130218
  8. ESANBUTOL [Concomitant]
     Active Substance: ETHAMBUTOL HYDROCHLORIDE
     Indication: PRODUCT USED FOR UNKNOWN INDICATION
     Dosage: 2 DF, UNK
     Route: 048
     Dates: start: 20130217
  9. ISOTONIC SODIUM CHLORIDE SOLUTION [Concomitant]
     Active Substance: SODIUM CHLORIDE
     Indication: PRODUCT USED FOR UNKNOWN INDICATION
     Dosage: 100 ML, UNK
     Route: 041
     Dates: start: 20130215
  10. NEOPHYLLIN [Concomitant]
     Indication: PRODUCT USED FOR UNKNOWN INDICATION
     Dosage: 10 ML, UNK
     Route: 065
     Dates: start: 20130216
  11. EXELON [Suspect]
     Active Substance: RIVASTIGMINE TARTRATE
     Indication: DEMENTIA ALZHEIMER^S TYPE
     Dosage: 4.5 MG DAILY
     Route: 062
     Dates: start: 20121018, end: 20121114
  12. VOLVIX [Concomitant]
     Indication: PRODUCT USED FOR UNKNOWN INDICATION
     Dosage: 2 ML, UNK
     Route: 065
     Dates: start: 20130218
  13. EXELON [Suspect]
     Active Substance: RIVASTIGMINE TARTRATE
     Dosage: 13.5 MG, DAILY
     Route: 062
     Dates: start: 20121213, end: 20130123
  14. ISOTONIC SODIUM CHLORIDE SOLUTION [Concomitant]
     Active Substance: SODIUM CHLORIDE
     Dosage: 100 ML, UNK
     Route: 041
  15. ZITHROMAC [Concomitant]
     Active Substance: AZITHROMYCIN DIHYDRATE
     Indication: PRODUCT USED FOR UNKNOWN INDICATION
     Dosage: 500 MG, BID
     Route: 041
     Dates: start: 20130216
  16. FULCALIQ [Concomitant]
     Active Substance: AMINO ACIDS\CARBOHYDRATES\ELECTROLYTES NOS\VITAMINS
     Indication: PRODUCT USED FOR UNKNOWN INDICATION
     Dosage: 2 ML, UNK
     Route: 042
     Dates: start: 20130218
  17. SODIUM CHLORIDE. [Concomitant]
     Active Substance: SODIUM CHLORIDE
     Indication: PRODUCT USED FOR UNKNOWN INDICATION
     Dosage: 50 ML, UNK
     Route: 041
     Dates: start: 20130218
  18. RIFADIN [Concomitant]
     Active Substance: RIFAMPIN
     Indication: PRODUCT USED FOR UNKNOWN INDICATION
     Dosage: 3 DF, UNK
     Route: 048
     Dates: start: 20130217
  19. LACTEC                             /00490001/ [Concomitant]
     Indication: PRODUCT USED FOR UNKNOWN INDICATION
     Dosage: 500 ML, UNK
     Route: 041
     Dates: start: 20130215
  20. ISOTONIC SODIUM CHLORIDE SOLUTION [Concomitant]
     Active Substance: SODIUM CHLORIDE
     Dosage: 100 ML, UNK
     Route: 041
  21. ISOTONIC SODIUM CHLORIDE SOLUTION [Concomitant]
     Active Substance: SODIUM CHLORIDE
     Dosage: 500 ML, UNK
     Route: 041
  22. SOLDEM 3A [Concomitant]
     Active Substance: CARBOHYDRATES\POTASSIUM CHLORIDE\SODIUM CHLORIDE\SODIUM LACTATE
     Indication: PRODUCT USED FOR UNKNOWN INDICATION
     Dosage: 500 ML, UNK
     Route: 041
     Dates: start: 20130215
  23. EXELON [Suspect]
     Active Substance: RIVASTIGMINE TARTRATE
     Dosage: 18 MG, DAILY
     Route: 062
     Dates: start: 20130124
  24. THYRADIN S [Concomitant]
     Active Substance: LEVOTHYROXINE SODIUM
     Indication: PRODUCT USED FOR UNKNOWN INDICATION
     Dosage: 25 UG, UNK
     Route: 065
     Dates: start: 20121213

REACTIONS (35)
  - Aspartate aminotransferase increased [Unknown]
  - Blood chloride decreased [Unknown]
  - C-reactive protein increased [Unknown]
  - Hyaluronic acid increased [Unknown]
  - Cardio-respiratory arrest [Unknown]
  - PCO2 increased [Unknown]
  - Albumin globulin ratio decreased [Unknown]
  - Beta-N-acetyl-D-glucosaminidase [Unknown]
  - Blood bicarbonate increased [Unknown]
  - Pyrexia [Fatal]
  - PO2 decreased [Unknown]
  - Blood immunoglobulin G increased [Unknown]
  - Blood sodium decreased [Unknown]
  - Neutrophil count increased [Unknown]
  - Oxygen saturation decreased [Unknown]
  - Blood phosphorus decreased [Unknown]
  - White blood cell count increased [Unknown]
  - Blood cholinesterase decreased [Unknown]
  - Blood creatine phosphokinase decreased [Unknown]
  - Blood pH decreased [Unknown]
  - Movement disorder [Unknown]
  - Amino acid level increased [Unknown]
  - Blood albumin decreased [Unknown]
  - Blood calcium decreased [Unknown]
  - Low density lipoprotein decreased [Unknown]
  - Atypical mycobacterial pneumonia [Fatal]
  - Aspergillus infection [Fatal]
  - Blood glucose increased [Unknown]
  - Blood uric acid decreased [Unknown]
  - Lymphocyte count decreased [Unknown]
  - Red cell distribution width increased [Unknown]
  - Hypercapnia [Unknown]
  - Ammonia increased [Unknown]
  - Blood lactate dehydrogenase increased [Unknown]
  - Candida test positive [Unknown]

NARRATIVE: CASE EVENT DATE: 20130215
